FAERS Safety Report 4707772-7 (Version None)
Quarter: 2005Q2

REPORT INFORMATION
  Report Type: 
  Country: None (occurrence: None)
  Receive Date: 20050629
  Receipt Date: 20050418
  Transmission Date: 20051028
  Serious: No
  Sender: FDA-Public Use
  Company Number: 05P-163-0297666-00

PATIENT
  Age: 67 Year
  Sex: Female
  Weight: 61.6892 kg

DRUGS (4)
  1. HUMIRA [Suspect]
     Indication: RHEUMATOID ARTHRITIS
     Dosage: 40 MG, 1 IN 2 WK, SUBCUTANEOUS
     Route: 058
     Dates: start: 20050214, end: 20050326
  2. HYDROXYCHLOROQUINE PHOSPHATE [Concomitant]
  3. PREDNISONE TAB [Concomitant]
  4. ESOMEPRAZOLE [Concomitant]

REACTIONS (5)
  - BACK PAIN [None]
  - BURNING SENSATION [None]
  - FEELING COLD [None]
  - MUSCULOSKELETAL STIFFNESS [None]
  - PELVIC PAIN [None]
